FAERS Safety Report 15987457 (Version 2)
Quarter: 2019Q1

REPORT INFORMATION
  Report Type: Spontaneous
  Country: US (occurrence: US)
  Receive Date: 20190220
  Receipt Date: 20190225
  Transmission Date: 20190418
  Serious: Yes (Other)
  Sender: FDA-Public Use
  Company Number: US-PFIZER INC-2019068817

PATIENT
  Age: 68 Year
  Sex: Female
  Weight: 70.3 kg

DRUGS (1)
  1. EXEMESTANE. [Suspect]
     Active Substance: EXEMESTANE
     Indication: BREAST CANCER METASTATIC
     Dosage: 25 MG, DAILY
     Route: 048
     Dates: start: 201805

REACTIONS (2)
  - Macular hole [Unknown]
  - Vitreous adhesions [Unknown]

NARRATIVE: CASE EVENT DATE: 20181227
